FAERS Safety Report 4848596-X (Version None)
Quarter: 2005Q4

REPORT INFORMATION
  Report Type: 
  Country: None (occurrence: None)
  Receive Date: 20051206
  Receipt Date: 20051128
  Transmission Date: 20060501
  Serious: Yes (Hospitalization)
  Sender: FDA-Public Use
  Company Number: 2005-135171-NL

PATIENT
  Age: 24 Month
  Sex: Male

DRUGS (1)
  1. MIRTAZAPINE [Suspect]
     Dosage: 60 MG
     Route: 048
     Dates: start: 20051113

REACTIONS (3)
  - ACCIDENTAL DRUG INTAKE BY CHILD [None]
  - CONVULSION [None]
  - SOMNOLENCE [None]
